FAERS Safety Report 6153626-1 (Version None)
Quarter: 2009Q2

REPORT INFORMATION
  Report Type: 
  Country: None (occurrence: None)
  Receive Date: 20090409
  Receipt Date: 20090325
  Transmission Date: 20091009
  Serious: Yes (Hospitalization)
  Sender: FDA-Public Use
  Company Number: 2009EU001324

PATIENT
  Age: 11 Year
  Sex: Male
  Weight: 35 kg

DRUGS (3)
  1. TACROLIMUS [Suspect]
     Indication: DERMATITIS ATOPIC
     Dosage: 0.03% UNKNOWN/D, TOPICAL
     Route: 061
     Dates: start: 20040118, end: 20040201
  2. VIANA (FLUTICASONE PROPIONATE, SALMETEROL XINAFOATE) [Concomitant]
  3. SALBUTAMOL (SALBUTAMOL SULFATE) [Concomitant]

REACTIONS (1)
  - LACTOSE TOLERANCE TEST [None]
